FAERS Safety Report 7406298-X (Version None)
Quarter: 2011Q2

REPORT INFORMATION
  Report Type: 
  Country: None (occurrence: None)
  Receive Date: 20110401
  Receipt Date: 20110325
  Transmission Date: 20111010
  Serious: Yes (Other)
  Sender: FDA-Public Use
  Company Number: IND1-FR-2011-0010

PATIENT
  Age: 55 Year
  Sex: Male

DRUGS (5)
  1. INDOCID (INDOMETACIN) (CINDOMETACIN) [Suspect]
     Indication: PSORIATIC ARTHROPATHY
     Dosage: 25 MG (25 MG,1 IN 1 D),ORAL
     Route: 048
     Dates: start: 20070101
  2. SPECIAFOLDINE (FOLIC ACID) (TABLETS) (FOLIC ACID) [Suspect]
     Indication: PSORIATIC ARTHROPATHY
     Dosage: (1 TABLET A WEEK) ORAL
     Route: 048
     Dates: start: 20070101
  3. INEXIUM (ESOMEPRAZOLE) (ESOMEPRAZOLE) [Suspect]
     Indication: PSORIATIC ARTHROPATHY
     Dosage: 20 MG (20 MG,1 IN 1 D) ORAL
     Route: 048
     Dates: start: 20070101
  4. REMICADE [Suspect]
     Dosage: 500 MG (6 MG/KG,1X500MG INJECTION EVERY 5-6 WEEKS) INTRAVENOUS
     Route: 042
     Dates: start: 20050101
  5. NOVATREX (METHOTREXATE SODIUM) (METHOTREXATE SODIUM) [Suspect]
     Indication: PSORIATIC ARTHROPATHY
     Dosage: 0.7143 MG (5 MG,1 IN 1 WK) ORAL
     Route: 048
     Dates: start: 20070101, end: 20110101

REACTIONS (5)
  - HYPERGAMMAGLOBULINAEMIA [None]
  - DEMYELINATING POLYNEUROPATHY [None]
  - HYPERPROTEINAEMIA [None]
  - CREATININE RENAL CLEARANCE DECREASED [None]
  - PERIPHERAL SENSORY NEUROPATHY [None]
